FAERS Safety Report 5299096-7 (Version None)
Quarter: 2007Q2

REPORT INFORMATION
  Report Type: 
  Country: None (occurrence: None)
  Receive Date: 20070417
  Receipt Date: 20070413
  Transmission Date: 20071010
  Serious: Yes (Hospitalization)
  Sender: FDA-Public Use
  Company Number: JP-JPN-A200700785

PATIENT
  Age: 72 Year
  Sex: Male

DRUGS (8)
  1. VALTREX [Suspect]
     Indication: HERPES ZOSTER
     Dosage: 1G PER DAY
     Route: 048
     Dates: start: 20070224, end: 20070224
  2. FUROSEMIDE [Concomitant]
     Dosage: 120MG PER DAY
     Route: 048
     Dates: start: 20011218
  3. WARFARIN SODIUM [Concomitant]
     Dosage: 2MG PER DAY
     Route: 048
     Dates: start: 20060502
  4. VASOLAN [Concomitant]
     Dosage: 120MG PER DAY
     Route: 048
     Dates: start: 20060504
  5. RENAGEL [Concomitant]
     Dosage: 4.5MG PER DAY
     Route: 048
     Dates: start: 20031207
  6. ALLOPURINOL [Concomitant]
  7. CONIEL [Concomitant]
     Dosage: 4MG PER DAY
     Route: 048
     Dates: start: 20040111
  8. ARGAMATE [Concomitant]
     Dosage: 20MG PER DAY
     Route: 048
     Dates: start: 20010605

REACTIONS (9)
  - DYSARTHRIA [None]
  - GAIT DISTURBANCE [None]
  - HALLUCINATION [None]
  - HOT FLUSH [None]
  - INCONTINENCE [None]
  - MEMORY IMPAIRMENT [None]
  - MUSCULAR WEAKNESS [None]
  - NAUSEA [None]
  - VOMITING [None]
